FAERS Safety Report 7885307-8 (Version None)
Quarter: 2011Q4

REPORT INFORMATION
  Report Type: 
  Country: None (occurrence: None)
  Receive Date: 20111102
  Receipt Date: 20110908
  Transmission Date: 20120403
  Serious: Yes (Other)
  Sender: FDA-Public Use
  Company Number: JP-PFIZER INC-2011265495

PATIENT
  Age: 74 Year
  Sex: Male
  Weight: 68 kg

DRUGS (4)
  1. OLMESARTAN MEDOXOMIL [Suspect]
     Indication: ESSENTIAL HYPERTENSION
     Dosage: 10 MG, UNK
     Route: 048
     Dates: start: 20100901, end: 20101108
  2. LIPIDIL [Suspect]
     Dosage: 100 MG, UNK
  3. OLMESARTAN MEDOXOMIL [Suspect]
     Dosage: 20 MG, UNK
     Route: 048
     Dates: start: 20101109
  4. AMLODIPINE [Suspect]
     Dosage: UNK

REACTIONS (1)
  - CAROTID ARTERY STENOSIS [None]
